APPROVED DRUG PRODUCT: VANCOMYCIN HYDROCHLORIDE
Active Ingredient: VANCOMYCIN HYDROCHLORIDE
Strength: EQ 500MG BASE/VIAL
Dosage Form/Route: INJECTABLE;INJECTION
Application: A203300 | Product #001
Applicant: HIKMA FARMACEUTICA PORTUGAL SA
Approved: Aug 11, 2020 | RLD: No | RS: No | Type: DISCN